FAERS Safety Report 16376046 (Version 1)
Quarter: 2019Q2

REPORT INFORMATION
  Report Type: Spontaneous
  Country: US (occurrence: US)
  Receive Date: 20190424
  Receipt Date: 20190424
  Transmission Date: 20190711
  Serious: No
  Sender: FDA-Public Use
  Company Number: None

PATIENT
  Age: 29 Year
  Sex: Male

DRUGS (1)
  1. PROCRIT [Suspect]
     Active Substance: ERYTHROPOIETIN
     Dosage: ?          OTHER STRENGTH:40000 U/ML;?
     Dates: start: 201902

REACTIONS (1)
  - Anaemia [None]

NARRATIVE: CASE EVENT DATE: 20190308
